FAERS Safety Report 12946995 (Version 2)
Quarter: 2016Q4

REPORT INFORMATION
  Report Type: Spontaneous
  Country: US (occurrence: US)
  Receive Date: 20161116
  Receipt Date: 20161124
  Transmission Date: 20170207
  Serious: No
  Sender: FDA-Public Use
  Company Number: US-PFIZER INC-2016529140

PATIENT
  Age: 72 Year

DRUGS (4)
  1. EFUDEX [Suspect]
     Active Substance: FLUOROURACIL
     Dosage: UNK
  2. ETANERCEPT [Suspect]
     Active Substance: ETANERCEPT
     Dosage: UNK
  3. AMLODIPINE BESILATE [Suspect]
     Active Substance: AMLODIPINE BESYLATE
     Dosage: UNK
  4. INDOMETHACIN. [Suspect]
     Active Substance: INDOMETHACIN
     Dosage: UNK

REACTIONS (1)
  - Drug hypersensitivity [Unknown]
